FAERS Safety Report 14337046 (Version 6)
Quarter: 2018Q4

REPORT INFORMATION
  Report Type: Spontaneous
  Country: SK (occurrence: SK)
  Receive Date: 20171229
  Receipt Date: 20181102
  Transmission Date: 20190204
  Serious: Yes (Death, Other)
  Sender: FDA-Public Use
  Company Number: SK-CELGENEUS-SVK-20171206257

PATIENT
  Age: 63 Year
  Sex: Male

DRUGS (13)
  1. ETAMSYLAT [Concomitant]
     Indication: THROMBOCYTOPENIA
     Dosage: MAX 3 CAPS PER DAY
     Route: 048
  2. PLATELETS [Concomitant]
     Active Substance: HUMAN PLATELET, ALLOGENIC
     Indication: THROMBOCYTOPENIA
     Route: 065
  3. ABRAXANE [Suspect]
     Active Substance: PACLITAXEL
     Route: 065
     Dates: start: 20151207, end: 201609
  4. SEVREDOL [Concomitant]
     Active Substance: MORPHINE
     Indication: ABDOMINAL PAIN
     Route: 048
     Dates: start: 201509, end: 201601
  5. PALONOSETRON. [Concomitant]
     Active Substance: PALONOSETRON HYDROCHLORIDE
     Indication: PROPHYLAXIS
     Route: 048
  6. ALLOPURINOL. [Concomitant]
     Active Substance: ALLOPURINOL
     Indication: HYPERURICAEMIA
     Dosage: 100 MILLIGRAM
     Route: 065
     Dates: start: 20160428, end: 20160505
  7. ABRAXANE [Suspect]
     Active Substance: PACLITAXEL
     Route: 065
     Dates: start: 201609, end: 20161017
  8. ABRAXANE [Suspect]
     Active Substance: PACLITAXEL
     Indication: PANCREATIC CARCINOMA METASTATIC
     Route: 065
     Dates: start: 20151207, end: 20161017
  9. GEMCITABINE [Suspect]
     Active Substance: GEMCITABINE\GEMCITABINE HYDROCHLORIDE
     Indication: PANCREATIC CARCINOMA METASTATIC
     Dosage: 1000 MILLIGRAM/SQ. METER
     Route: 065
     Dates: start: 20151207, end: 20161017
  10. GEMCITABINE [Suspect]
     Active Substance: GEMCITABINE\GEMCITABINE HYDROCHLORIDE
     Route: 065
     Dates: start: 20151109, end: 20151123
  11. GEMCITABINE [Suspect]
     Active Substance: GEMCITABINE\GEMCITABINE HYDROCHLORIDE
     Dosage: 3000 MILLIGRAM/SQ. METER
     Route: 065
     Dates: start: 201609, end: 20161017
  12. CISPLATIN. [Suspect]
     Active Substance: CISPLATIN
     Indication: PANCREATIC CARCINOMA METASTATIC
     Route: 065
     Dates: start: 20151109, end: 20151123
  13. SEVREDOL [Concomitant]
     Active Substance: MORPHINE
     Dosage: 20 MILLIGRAM
     Route: 048
     Dates: start: 20160622

REACTIONS (4)
  - Thrombocytopenia [Recovered/Resolved]
  - Pancreatic carcinoma [Fatal]
  - Weight decreased [Unknown]
  - Pain [Unknown]

NARRATIVE: CASE EVENT DATE: 20160129
